FAERS Safety Report 14620712 (Version 1)
Quarter: 2018Q1

REPORT INFORMATION
  Report Type: Spontaneous
  Country: US (occurrence: US)
  Receive Date: 20180309
  Receipt Date: 20180309
  Transmission Date: 20180509
  Serious: Yes (Hospitalization, Other)
  Sender: FDA-Public Use
  Company Number: US-TEVA-2018-US-866953

PATIENT
  Age: 11 Year
  Sex: Male

DRUGS (1)
  1. FLUTICASONE. [Suspect]
     Active Substance: FLUTICASONE
     Indication: ASTHMA
     Dosage: 4 DOSAGE FORMS DAILY; ROUTED: INHALATION
     Route: 065

REACTIONS (4)
  - Overdose [Unknown]
  - Abdominal pain [Unknown]
  - Withdrawal syndrome [Unknown]
  - Intracranial pressure increased [Unknown]
